FAERS Safety Report 7484676-0 (Version None)
Quarter: 2011Q2

REPORT INFORMATION
  Report Type: 
  Country: None (occurrence: None)
  Receive Date: 20110517
  Receipt Date: 20101217
  Transmission Date: 20111010
  Serious: Yes (Hospitalization, Other)
  Sender: FDA-Public Use
  Company Number: US-BAYER-200936823NA

PATIENT
  Age: 36 Year
  Sex: Female
  Weight: 72.562 kg

DRUGS (19)
  1. LORATADINE [Concomitant]
     Indication: MULTIPLE ALLERGIES
     Dates: start: 20080101, end: 20090101
  2. YAZ [Suspect]
     Indication: ORAL CONTRACEPTION
     Route: 048
     Dates: start: 20080801, end: 20090301
  3. NICOTINE [Concomitant]
     Indication: TOBACCO USER
     Dates: start: 20060701
  4. ERYTHROMYCIN [Concomitant]
     Dates: start: 20060101
  5. FLUCONAZOLE [Concomitant]
     Dates: start: 20060101, end: 20070101
  6. AMLODIPINE BESYLATE [Concomitant]
     Dates: start: 20080101
  7. SULFAMETHOXAZOLE TRIMETHOPRIM [Concomitant]
     Dates: start: 20060101
  8. YASMIN [Suspect]
     Indication: ORAL CONTRACEPTION
     Route: 048
     Dates: start: 20060201, end: 20061201
  9. LOTREL [Concomitant]
     Indication: CORONARY ARTERY DISEASE
     Dates: start: 20060101
  10. NAPROXEN [Concomitant]
     Dates: start: 20040101
  11. CLARITHROMYCIN [Concomitant]
     Dates: start: 20070101
  12. BENAZEPRIL HYDROCHLORIDE [Concomitant]
     Indication: HYPERTENSION
     Dates: start: 20050101, end: 20090101
  13. BUPROPION [Concomitant]
  14. DEPO-PROVERA [Concomitant]
     Indication: CONTRACEPTION
  15. ISOSORBIDE DINITRATE [Concomitant]
     Indication: HYPERTENSION
     Dates: start: 20060101, end: 20080101
  16. METOPROLOL SUCCINATE [Concomitant]
     Dates: start: 20060101, end: 20070101
  17. HYDROCHLOROTHIAZIDE [Concomitant]
     Dates: start: 20080101
  18. ENALAPRIL [Concomitant]
     Dates: start: 20060101
  19. METRONIDAZOLE [Concomitant]
     Dates: start: 20070101

REACTIONS (11)
  - BRONCHITIS [None]
  - COUGH [None]
  - PALPITATIONS [None]
  - PLEURITIC PAIN [None]
  - CEREBROVASCULAR ACCIDENT [None]
  - CHOLELITHIASIS [None]
  - ABDOMINAL PAIN UPPER [None]
  - DYSPNOEA [None]
  - MYOCARDIAL INFARCTION [None]
  - CORONARY ARTERY DISEASE [None]
  - CHOLECYSTITIS [None]
